FAERS Safety Report 22896121 (Version 2)
Quarter: 2023Q4

REPORT INFORMATION
  Report Type: Spontaneous
  Country: US (occurrence: US)
  Receive Date: 20230901
  Receipt Date: 20231002
  Transmission Date: 20240109
  Serious: No
  Sender: FDA-Public Use
  Company Number: US-PFIZER INC-202300289216

PATIENT

DRUGS (1)
  1. PAXLOVID [Suspect]
     Active Substance: NIRMATRELVIR\RITONAVIR
     Indication: COVID-19 treatment
     Dosage: UNK

REACTIONS (7)
  - Dysgeusia [Unknown]
  - Faeces pale [Unknown]
  - Myalgia [Unknown]
  - Restless legs syndrome [Unknown]
  - Insomnia [Unknown]
  - Mastication disorder [Recovered/Resolved]
  - Trismus [Unknown]
